FAERS Safety Report 5669289-5 (Version None)
Quarter: 2008Q1

REPORT INFORMATION
  Report Type: 
  Country: None (occurrence: None)
  Receive Date: 20080317
  Receipt Date: 20080304
  Transmission Date: 20080703
  Serious: Yes (Other)
  Sender: FDA-Public Use
  Company Number: PHHY2008BE02723

PATIENT

DRUGS (3)
  1. ZOMETA [Suspect]
  2. VITAMIN D [Concomitant]
  3. CALCIUM [Concomitant]

REACTIONS (1)
  - OSTEONECROSIS [None]
